FAERS Safety Report 8458693-8 (Version None)
Quarter: 2012Q2

REPORT INFORMATION
  Report Type: 
  Country: None (occurrence: None)
  Receive Date: 20120615
  Receipt Date: 20120604
  Transmission Date: 20120825
  Serious: Yes (Hospitalization, Other)
  Sender: FDA-Public Use
  Company Number: EU-2012-10083

PATIENT
  Sex: Female
  Weight: 54 kg

DRUGS (67)
  1. FENOFIBRATE [Concomitant]
  2. CARBOPLATIN [Concomitant]
  3. LEVOTHYROXINE SODIUM [Concomitant]
  4. METOCLOPRAMIDE HYDROCHLORIDE [Concomitant]
  5. RIOPAN (MAGALDRATE) GEL [Concomitant]
  6. VERGENTAN (ALIZAPRIDE HYDROCHLORIDE) [Concomitant]
  7. NACL (NACI) [Concomitant]
  8. SALINE (SALINE) [Concomitant]
  9. TAVEGIL (CLEMASTINE) TABLET [Concomitant]
  10. NULYTELY [Concomitant]
  11. HALDOL [Concomitant]
  12. RIOPAN (MAGALDRATE) GEL [Concomitant]
  13. SAMSCA [Suspect]
     Indication: NEOPLASM
     Dosage: 15 MG MILLIGRAM(S), DAILY DOSE, ORAL, ORAL
     Route: 048
     Dates: start: 20120117, end: 20120117
  14. SAMSCA [Suspect]
     Indication: HYPONATRAEMIA
     Dosage: 15 MG MILLIGRAM(S), DAILY DOSE, ORAL, ORAL
     Route: 048
     Dates: start: 20120117, end: 20120117
  15. SAMSCA [Suspect]
     Indication: INAPPROPRIATE ANTIDIURETIC HORMONE SECRETION
     Dosage: 15 MG MILLIGRAM(S), DAILY DOSE, ORAL, ORAL
     Route: 048
     Dates: start: 20120117, end: 20120117
  16. SAMSCA [Suspect]
     Indication: NEOPLASM
     Dosage: 15 MG MILLIGRAM(S), DAILY DOSE, ORAL, ORAL
     Route: 048
     Dates: start: 20120228, end: 20120326
  17. SAMSCA [Suspect]
     Indication: HYPONATRAEMIA
     Dosage: 15 MG MILLIGRAM(S), DAILY DOSE, ORAL, ORAL
     Route: 048
     Dates: start: 20120228, end: 20120326
  18. SAMSCA [Suspect]
     Indication: INAPPROPRIATE ANTIDIURETIC HORMONE SECRETION
     Dosage: 15 MG MILLIGRAM(S), DAILY DOSE, ORAL, ORAL
     Route: 048
     Dates: start: 20120228, end: 20120326
  19. SAMSCA [Suspect]
     Indication: NEOPLASM
     Dosage: 15 MG MILLIGRAM(S), DAILY DOSE, ORAL, ORAL
     Route: 048
     Dates: start: 20120330, end: 20120408
  20. SAMSCA [Suspect]
     Indication: HYPONATRAEMIA
     Dosage: 15 MG MILLIGRAM(S), DAILY DOSE, ORAL, ORAL
     Route: 048
     Dates: start: 20120330, end: 20120408
  21. SAMSCA [Suspect]
     Indication: INAPPROPRIATE ANTIDIURETIC HORMONE SECRETION
     Dosage: 15 MG MILLIGRAM(S), DAILY DOSE, ORAL, ORAL
     Route: 048
     Dates: start: 20120330, end: 20120408
  22. SAMSCA [Suspect]
     Indication: NEOPLASM
     Dosage: 15 MG MILLIGRAM(S), DAILY DOSE, ORAL, ORAL
     Route: 048
     Dates: end: 20120423
  23. SAMSCA [Suspect]
     Indication: HYPONATRAEMIA
     Dosage: 15 MG MILLIGRAM(S), DAILY DOSE, ORAL, ORAL
     Route: 048
     Dates: end: 20120423
  24. SAMSCA [Suspect]
     Indication: INAPPROPRIATE ANTIDIURETIC HORMONE SECRETION
     Dosage: 15 MG MILLIGRAM(S), DAILY DOSE, ORAL, ORAL
     Route: 048
     Dates: end: 20120423
  25. SAMSCA [Suspect]
     Indication: NEOPLASM
     Dosage: 15 MG MILLIGRAM(S), DAILY DOSE, ORAL, ORAL
     Route: 048
     Dates: start: 20120202, end: 20120202
  26. SAMSCA [Suspect]
     Indication: HYPONATRAEMIA
     Dosage: 15 MG MILLIGRAM(S), DAILY DOSE, ORAL, ORAL
     Route: 048
     Dates: start: 20120202, end: 20120202
  27. SAMSCA [Suspect]
     Indication: INAPPROPRIATE ANTIDIURETIC HORMONE SECRETION
     Dosage: 15 MG MILLIGRAM(S), DAILY DOSE, ORAL, ORAL
     Route: 048
     Dates: start: 20120202, end: 20120202
  28. SAMSCA [Suspect]
     Indication: NEOPLASM
     Dosage: 15 MG MILLIGRAM(S), DAILY DOSE, ORAL, ORAL
     Route: 048
     Dates: start: 20120417, end: 20120418
  29. SAMSCA [Suspect]
     Indication: HYPONATRAEMIA
     Dosage: 15 MG MILLIGRAM(S), DAILY DOSE, ORAL, ORAL
     Route: 048
     Dates: start: 20120417, end: 20120418
  30. SAMSCA [Suspect]
     Indication: INAPPROPRIATE ANTIDIURETIC HORMONE SECRETION
     Dosage: 15 MG MILLIGRAM(S), DAILY DOSE, ORAL, ORAL
     Route: 048
     Dates: start: 20120417, end: 20120418
  31. SAMSCA [Suspect]
     Indication: NEOPLASM
     Dosage: 15 MG MILLIGRAM(S), DAILY DOSE, ORAL, ORAL
     Route: 048
     Dates: start: 20111221, end: 20111221
  32. SAMSCA [Suspect]
     Indication: HYPONATRAEMIA
     Dosage: 15 MG MILLIGRAM(S), DAILY DOSE, ORAL, ORAL
     Route: 048
     Dates: start: 20111221, end: 20111221
  33. SAMSCA [Suspect]
     Indication: INAPPROPRIATE ANTIDIURETIC HORMONE SECRETION
     Dosage: 15 MG MILLIGRAM(S), DAILY DOSE, ORAL, ORAL
     Route: 048
     Dates: start: 20111221, end: 20111221
  34. SAMSCA [Suspect]
     Indication: NEOPLASM
     Dosage: 15 MG MILLIGRAM(S), DAILY DOSE, ORAL, ORAL
     Route: 048
     Dates: start: 20120109, end: 20120109
  35. SAMSCA [Suspect]
     Indication: HYPONATRAEMIA
     Dosage: 15 MG MILLIGRAM(S), DAILY DOSE, ORAL, ORAL
     Route: 048
     Dates: start: 20120109, end: 20120109
  36. SAMSCA [Suspect]
     Indication: INAPPROPRIATE ANTIDIURETIC HORMONE SECRETION
     Dosage: 15 MG MILLIGRAM(S), DAILY DOSE, ORAL, ORAL
     Route: 048
     Dates: start: 20120109, end: 20120109
  37. SAMSCA [Suspect]
     Indication: NEOPLASM
     Dosage: 15 MG MILLIGRAM(S), DAILY DOSE, ORAL, ORAL
     Route: 048
     Dates: start: 20120414, end: 20120414
  38. SAMSCA [Suspect]
     Indication: HYPONATRAEMIA
     Dosage: 15 MG MILLIGRAM(S), DAILY DOSE, ORAL, ORAL
     Route: 048
     Dates: start: 20120414, end: 20120414
  39. SAMSCA [Suspect]
     Indication: INAPPROPRIATE ANTIDIURETIC HORMONE SECRETION
     Dosage: 15 MG MILLIGRAM(S), DAILY DOSE, ORAL, ORAL
     Route: 048
     Dates: start: 20120414, end: 20120414
  40. SAMSCA [Suspect]
     Indication: NEOPLASM
     Dosage: 15 MG MILLIGRAM(S), DAILY DOSE, ORAL, ORAL
     Route: 048
     Dates: start: 20120420, end: 20120421
  41. SAMSCA [Suspect]
     Indication: HYPONATRAEMIA
     Dosage: 15 MG MILLIGRAM(S), DAILY DOSE, ORAL, ORAL
     Route: 048
     Dates: start: 20120420, end: 20120421
  42. SAMSCA [Suspect]
     Indication: INAPPROPRIATE ANTIDIURETIC HORMONE SECRETION
     Dosage: 15 MG MILLIGRAM(S), DAILY DOSE, ORAL, ORAL
     Route: 048
     Dates: start: 20120420, end: 20120421
  43. SAMSCA [Suspect]
     Indication: NEOPLASM
     Dosage: 15 MG MILLIGRAM(S), DAILY DOSE, ORAL, ORAL
     Route: 048
     Dates: start: 20120222, end: 20120222
  44. SAMSCA [Suspect]
     Indication: HYPONATRAEMIA
     Dosage: 15 MG MILLIGRAM(S), DAILY DOSE, ORAL, ORAL
     Route: 048
     Dates: start: 20120222, end: 20120222
  45. SAMSCA [Suspect]
     Indication: INAPPROPRIATE ANTIDIURETIC HORMONE SECRETION
     Dosage: 15 MG MILLIGRAM(S), DAILY DOSE, ORAL, ORAL
     Route: 048
     Dates: start: 20120222, end: 20120222
  46. SAMSCA [Suspect]
     Indication: NEOPLASM
     Dosage: 15 MG MILLIGRAM(S), DAILY DOSE, ORAL, ORAL
     Route: 048
     Dates: start: 20120412, end: 20120412
  47. SAMSCA [Suspect]
     Indication: HYPONATRAEMIA
     Dosage: 15 MG MILLIGRAM(S), DAILY DOSE, ORAL, ORAL
     Route: 048
     Dates: start: 20120412, end: 20120412
  48. SAMSCA [Suspect]
     Indication: INAPPROPRIATE ANTIDIURETIC HORMONE SECRETION
     Dosage: 15 MG MILLIGRAM(S), DAILY DOSE, ORAL, ORAL
     Route: 048
     Dates: start: 20120412, end: 20120412
  49. PANTOPRAZOLE SODIUM [Concomitant]
  50. DIMENHYDRINATE [Concomitant]
  51. METOCLOPRAMIDE [Concomitant]
  52. PANTOPRAZOLE SODIUM [Concomitant]
  53. ATACAND [Concomitant]
  54. ZOFRAN [Concomitant]
  55. BEZAFIBRAT (BEZAFIBRATE) [Concomitant]
  56. METOPROLOL SUCCINATE [Concomitant]
  57. NOVALGIN (METAMIZOLE SODIUM) [Concomitant]
  58. GRANISETRON (GRANISETRON HYDROCHLORIDE) [Concomitant]
  59. PREDNISOLON (PREDNISOLONE SODIUM SUCCINATE) [Concomitant]
  60. DEXAMETHASONE SODIUM POSPHATE [Concomitant]
  61. EMEND [Concomitant]
  62. ETOPOSIDE [Concomitant]
  63. BUSCOPAN (HYOSCINE BUTYLBROMIDE) CAPSULE [Concomitant]
  64. RANITIDINE HYDROCHLORIDE [Concomitant]
  65. FRAXIPARIN (NADROPARIN CALCIUM) [Concomitant]
  66. RANITIDINE HYDROCHLORIDE [Concomitant]
  67. ZANTAC [Concomitant]

REACTIONS (5)
  - VOMITING [None]
  - RAPID CORRECTION OF HYPONATRAEMIA [None]
  - GENERAL PHYSICAL HEALTH DETERIORATION [None]
  - THIRST [None]
  - NAUSEA [None]
